FAERS Safety Report 11750294 (Version 1)
Quarter: 2015Q4

REPORT INFORMATION
  Report Type: Spontaneous
  Country: US (occurrence: US)
  Receive Date: 20151118
  Receipt Date: 20151118
  Transmission Date: 20160304
  Serious: Yes (Death)
  Sender: FDA-Public Use
  Company Number: US-SA-2015SA185000

PATIENT
  Age: 74 Year
  Sex: Male

DRUGS (1)
  1. RENVELA [Suspect]
     Active Substance: SEVELAMER CARBONATE
     Dosage: 6 TABLETS DAILY
     Route: 048
     Dates: start: 20150811, end: 20151105

REACTIONS (1)
  - Death [Fatal]

NARRATIVE: CASE EVENT DATE: 20151107
